FAERS Safety Report 6429528-X (Version None)
Quarter: 2009Q4

REPORT INFORMATION
  Report Type: 
  Country: None (occurrence: None)
  Receive Date: 20091022
  Receipt Date: 20091009
  Transmission Date: 20100525
  Serious: Yes (Hospitalization, Other)
  Sender: FDA-Public Use
  Company Number: THYM-1001258

PATIENT
  Age: 58 Year
  Sex: Female
  Weight: 53.5 kg

DRUGS (33)
  1. THYMOGLOBULIN          (ANTI-THYMOCYTE GLOBULIN (RABBIT) POWDER SOLUTI [Suspect]
     Indication: STEM CELL TRANSPLANT
     Dosage: 53 MG, ONCE, INTRAVENOUS
     Route: 042
     Dates: start: 20090520, end: 20090520
  2. THYMOGLOBULIN (ANTI-THYMOCYTE GLOBULIN (RABBIT) POWDER SOLUTION FOR IN [Suspect]
     Dosage: 185 MG, ONCE, INTRAVENOUS
     Route: 036
     Dates: start: 20090521, end: 20090521
  3. FLUDARABINE PHOSPHATE [Concomitant]
  4. BUSULFAN (BUSULFAN) [Concomitant]
  5. CYCLOPHOSPHAMIDE [Concomitant]
  6. COMPAZINE (PROCHLORPERAZINE MALEATE) [Concomitant]
  7. BENADRYL [Concomitant]
  8. RESTORIL [Concomitant]
  9. CALCIUM CARBONATE [Concomitant]
  10. CANCIDAS (CASPOFUNGIN) [Concomitant]
  11. NOXAFIL [Concomitant]
  12. PROGRAF [Concomitant]
  13. ATIVAN [Concomitant]
  14. MAGNESIUM (MAGNESIUM) [Concomitant]
  15. AMINO ACIDS [Concomitant]
  16. CIPRO [Concomitant]
  17. CYMBALTA [Concomitant]
  18. FOSCAVIR [Concomitant]
  19. LYRICA [Concomitant]
  20. FLAGYL [Concomitant]
  21. NEUPOGEN [Concomitant]
  22. ULTRAM [Concomitant]
  23. RESTASIS (CICLOSPORIN) [Concomitant]
  24. ZOVIRAX [Concomitant]
  25. TYLENOL [Concomitant]
  26. ONDANSETRON [Concomitant]
  27. PROTONIX [Concomitant]
  28. RE METHYLPHEN [Concomitant]
  29. SUCRALFATE [Concomitant]
  30. POTASSIUM CHLORIDE [Concomitant]
  31. HEPARIN [Concomitant]
  32. NEXIUM (ESOMEPRAZOLE SODIUM) [Concomitant]
  33. NOVOLOG [Concomitant]

REACTIONS (6)
  - CLOSTRIDIUM DIFFICILE COLITIS [None]
  - EROSIVE OESOPHAGITIS [None]
  - FIBROMYALGIA [None]
  - GASTRITIS [None]
  - PANCYTOPENIA [None]
  - UPPER GASTROINTESTINAL HAEMORRHAGE [None]
